FAERS Safety Report 13190758 (Version 9)
Quarter: 2019Q2

REPORT INFORMATION
  Report Type: Report from Study
  Country: US (occurrence: US)
  Receive Date: 20170206
  Receipt Date: 20190405
  Transmission Date: 20190711
  Serious: Yes (Other)
  Sender: FDA-Public Use
  Company Number: US-GILEAD-2017-0253698

PATIENT
  Age: 77 Year
  Sex: Female
  Weight: 62.59 kg

DRUGS (1)
  1. LEDIPASVIR/SOFOSBUVIR [Suspect]
     Active Substance: LEDIPASVIR\SOFOSBUVIR
     Indication: CHRONIC HEPATITIS C
     Dosage: 1 DF, QD
     Route: 048
     Dates: start: 20160321, end: 20160613

REACTIONS (37)
  - Hepatitis B [Unknown]
  - Deafness [Not Recovered/Not Resolved]
  - Amnesia [Not Recovered/Not Resolved]
  - General physical condition abnormal [Unknown]
  - Chills [Not Recovered/Not Resolved]
  - Food allergy [Not Recovered/Not Resolved]
  - Sleep disorder [Not Recovered/Not Resolved]
  - Influenza [Not Recovered/Not Resolved]
  - Liver injury [Not Recovered/Not Resolved]
  - Panic attack [Not Recovered/Not Resolved]
  - Candida infection [Not Recovered/Not Resolved]
  - Oedema peripheral [Not Recovered/Not Resolved]
  - Malaise [Not Recovered/Not Resolved]
  - Depression [Not Recovered/Not Resolved]
  - Fatigue [Unknown]
  - Retinal injury [Not Recovered/Not Resolved]
  - Autoimmune disorder [Not Recovered/Not Resolved]
  - Speech disorder [Unknown]
  - Oral pain [Not Recovered/Not Resolved]
  - Alopecia [Unknown]
  - Unevaluable event [Not Recovered/Not Resolved]
  - Visual impairment [Not Recovered/Not Resolved]
  - Dizziness [Not Recovered/Not Resolved]
  - Stomatitis [Not Recovered/Not Resolved]
  - Headache [Unknown]
  - Immunodeficiency [Not Recovered/Not Resolved]
  - Disorientation [Not Recovered/Not Resolved]
  - Breath odour [Unknown]
  - Eye disorder [Unknown]
  - Thirst [Not Recovered/Not Resolved]
  - Ill-defined disorder [Unknown]
  - Emotional disorder [Unknown]
  - Nasopharyngitis [Not Recovered/Not Resolved]
  - Hypersensitivity [Unknown]
  - Confusional state [Not Recovered/Not Resolved]
  - Cough [Not Recovered/Not Resolved]
  - Anxiety [Unknown]

NARRATIVE: CASE EVENT DATE: 201603
